FAERS Safety Report 8823892 (Version 2)
Quarter: 2012Q4

REPORT INFORMATION
  Report Type: 
  Country: AU (occurrence: AU)
  Receive Date: 20121003
  Receipt Date: 20121107
  Transmission Date: 20130627
  Serious: Yes (Hospitalization)
  Sender: FDA-Public Use
  Company Number: AU-B.I. PHARMACEUTICALS,INC./RIDGEFIELD-2012-AU-01663AU

PATIENT
  Age: 75 Year
  Sex: Female

DRUGS (7)
  1. PRADAXA [Suspect]
     Indication: ATRIAL FIBRILLATION
     Dosage: 220 mg
  2. ISOPTIN SR [Concomitant]
     Dosage: 240 mg
  3. OLMETEC [Concomitant]
     Dosage: 40 mg
  4. DIGOXIN [Concomitant]
     Dosage: 125 mcg
  5. ATORVASTATIN [Concomitant]
     Dosage: 20 mg
  6. VITAMIN D [Concomitant]
     Dosage: 1000 U
  7. TAMOXIFEN [Concomitant]
     Indication: BREAST CANCER

REACTIONS (5)
  - Pneumonia [Unknown]
  - Thoracic vertebral fracture [Unknown]
  - Spinal osteoarthritis [Unknown]
  - Pleuritic pain [Unknown]
  - Back pain [Unknown]
